FAERS Safety Report 7576384-2 (Version None)
Quarter: 2011Q2

REPORT INFORMATION
  Report Type: 
  Country: None (occurrence: None)
  Receive Date: 20110628
  Receipt Date: 20110211
  Transmission Date: 20111010
  Serious: Yes (Other)
  Sender: FDA-Public Use
  Company Number: US-BAYER-200942498NA

PATIENT
  Age: 31 Year
  Sex: Female
  Weight: 86 kg

DRUGS (12)
  1. IBUPROFEN [Concomitant]
     Dosage: UNK UNK, PRN
  2. EFFEXOR [Concomitant]
  3. UNASYN [Concomitant]
  4. FLAGYL [Concomitant]
  5. LEVAQUIN [Concomitant]
  6. DOXYCYCLINE [Concomitant]
  7. ALPRAZOLAM [Concomitant]
     Indication: DEPRESSION
     Dosage: UNK
     Dates: start: 20040101, end: 20070101
  8. YAZ [Suspect]
     Indication: ORAL CONTRACEPTION
     Dates: start: 20070601, end: 20071201
  9. YAZ [Suspect]
     Indication: ENDOMETRIOSIS
  10. I.V. SOLUTIONS [Concomitant]
     Route: 042
  11. YAZ [Suspect]
     Indication: PREMENSTRUAL SYNDROME
  12. RANITIDINE [Concomitant]
     Indication: GASTROOESOPHAGEAL REFLUX DISEASE
     Dosage: 150 MG, BID
     Dates: start: 20071120, end: 20071212

REACTIONS (13)
  - CHOLECYSTITIS CHRONIC [None]
  - DEPRESSION [None]
  - ASTHENIA [None]
  - ABDOMINAL PAIN LOWER [None]
  - IRRITABLE BOWEL SYNDROME [None]
  - ANXIETY [None]
  - PULMONARY EMBOLISM [None]
  - ABDOMINAL DISTENSION [None]
  - LETHARGY [None]
  - CHOLESTEROSIS [None]
  - ABDOMINAL PAIN UPPER [None]
  - VOMITING [None]
  - DYSPNOEA [None]
